FAERS Safety Report 21142088 (Version 1)
Quarter: 2022Q3

REPORT INFORMATION
  Report Type: Spontaneous
  Country: GR (occurrence: GR)
  Receive Date: 20220728
  Receipt Date: 20220728
  Transmission Date: 20221027
  Serious: Yes (Other)
  Sender: FDA-Public Use
  Company Number: GR-GLAXOSMITHKLINE-GR2022EME111446

PATIENT

DRUGS (1)
  1. BLENREP [Suspect]
     Active Substance: BELANTAMAB MAFODOTIN-BLMF
     Indication: Plasma cell myeloma
     Dosage: UNK
     Route: 042

REACTIONS (5)
  - Corneal cyst [Unknown]
  - Dry eye [Not Recovered/Not Resolved]
  - Corneal disorder [Unknown]
  - Myopia [Unknown]
  - Astigmatism [Unknown]
